FAERS Safety Report 5261777-9 (Version None)
Quarter: 2007Q1

REPORT INFORMATION
  Report Type: 
  Country: None (occurrence: None)
  Receive Date: 20061208
  Receipt Date: 20060531
  Transmission Date: 20070707
  Serious: Yes (Death)
  Sender: FDA-Public Use
  Company Number: USA-2006-0024351

PATIENT
  Sex: Female

DRUGS (6)
  1. OXYCONTIN [Suspect]
     Indication: PAIN
     Dosage: 20 MG, TID
  2. OXYCODONE HCL [Suspect]
     Indication: PAIN
  3. PROMETHAZINE [Concomitant]
  4. ANTIDEPRESSANTS [Concomitant]
  5. SSRI'S [Concomitant]
  6. .. [Concomitant]

REACTIONS (1)
  - OVERDOSE [None]
